FAERS Safety Report 9189741 (Version 1)
Quarter: 2013Q1

REPORT INFORMATION
  Report Type: Spontaneous
  Country: US (occurrence: US)
  Receive Date: 20130326
  Receipt Date: 20130326
  Transmission Date: 20140127
  Serious: No
  Sender: FDA-Public Use
  Company Number: US-BAYER-2013-037496

PATIENT
  Age: 94 Year
  Sex: Female
  Weight: 53 kg

DRUGS (2)
  1. ALEVE TABLET [Suspect]
     Indication: BACK PAIN
     Dosage: 1 DF, BID
     Route: 048
     Dates: start: 201302
  2. COZAAR [Concomitant]

REACTIONS (2)
  - Pruritus [Not Recovered/Not Resolved]
  - Incorrect drug administration duration [None]
